FAERS Safety Report 5020716-6 (Version None)
Quarter: 2006Q2

REPORT INFORMATION
  Report Type: 
  Country: None (occurrence: None)
  Receive Date: 20060601
  Receipt Date: 20060517
  Transmission Date: 20061013
  Serious: Yes (Other)
  Sender: FDA-Public Use
  Company Number: PHBS2006JP07533

PATIENT
  Sex: Male

DRUGS (3)
  1. CYCLOSPORINE [Suspect]
     Indication: RENAL TRANSPLANT
     Dosage: ORAL
     Route: 048
  2. PREDNISOLONE [Suspect]
     Indication: RENAL TRANSPLANT
     Dosage: ORAL
     Route: 048
  3. MIZORIBINE (MIZORIBINE) [Concomitant]

REACTIONS (3)
  - BONE NEOPLASM [None]
  - LYMPHOPROLIFERATIVE DISORDER [None]
  - MULTIPLE MYELOMA [None]
